FAERS Safety Report 18401387 (Version 2)
Quarter: 2021Q1

REPORT INFORMATION
  Report Type: Report from Study
  Country: US (occurrence: US)
  Receive Date: 20201019
  Receipt Date: 20210128
  Transmission Date: 20210419
  Serious: Yes (Other)
  Sender: FDA-Public Use
  Company Number: NVSC2020US275768

PATIENT
  Sex: Male

DRUGS (1)
  1. ENTRESTO [Suspect]
     Active Substance: SACUBITRIL\VALSARTAN
     Indication: CARDIAC FAILURE
     Dosage: 100 MG, BID (49/51 MG)
     Route: 048

REACTIONS (5)
  - Fatigue [Recovering/Resolving]
  - Cardiac valve disease [Unknown]
  - Conduction disorder [Unknown]
  - Weight decreased [Unknown]
  - Blood cholesterol decreased [Unknown]
